FAERS Safety Report 9508972 (Version 1)
Quarter: 2013Q3

REPORT INFORMATION
  Report Type: Spontaneous
  Country: US (occurrence: US)
  Receive Date: 20130909
  Receipt Date: 20130909
  Transmission Date: 20140515
  Serious: No
  Sender: FDA-Public Use
  Company Number: US-BRISTOL-MYERS SQUIBB COMPANY-19059575

PATIENT
  Age: 54 Year
  Sex: Female
  Weight: 81.63 kg

DRUGS (5)
  1. ABILIFY [Suspect]
     Dates: start: 201201, end: 20130613
  2. ZOLOFT [Concomitant]
  3. RITALIN [Concomitant]
  4. CLONAZEPAM [Concomitant]
  5. SEROQUEL [Concomitant]

REACTIONS (2)
  - Headache [Not Recovered/Not Resolved]
  - Nausea [Not Recovered/Not Resolved]
